FAERS Safety Report 12754828 (Version 2)
Quarter: 2016Q3

REPORT INFORMATION
  Report Type: Spontaneous
  Country: IT (occurrence: IT)
  Receive Date: 20160916
  Receipt Date: 20160930
  Transmission Date: 20161109
  Serious: Yes (Hospitalization, Other)
  Sender: FDA-Public Use
  Company Number: IT-PFIZER INC-2016430350

PATIENT
  Age: 75 Year
  Sex: Female
  Weight: 75 kg

DRUGS (1)
  1. EFFEXOR XR [Suspect]
     Active Substance: VENLAFAXINE HYDROCHLORIDE
     Indication: DEPRESSION
     Dosage: 75 MG, DAILY
     Route: 048
     Dates: start: 20160818, end: 20160820

REACTIONS (5)
  - Fall [Unknown]
  - Drug abuse [Unknown]
  - Anxiety [Unknown]
  - Rash maculo-papular [Recovered/Resolved]
  - Multiple injuries [Unknown]

NARRATIVE: CASE EVENT DATE: 20160819
